FAERS Safety Report 8268907-5 (Version None)
Quarter: 2012Q1

REPORT INFORMATION
  Report Type: 
  Country: None (occurrence: None)
  Receive Date: 20120327
  Receipt Date: 20090514
  Transmission Date: 20120608
  Serious: Yes (Hospitalization)
  Sender: FDA-Public Use
  Company Number: PHEH2009US04887

PATIENT
  Age: 24 Year

DRUGS (1)
  1. GLEEVEC [Suspect]
     Dosage: UNK

REACTIONS (1)
  - HYPEREOSINOPHILIC SYNDROME [None]
